FAERS Safety Report 16355912 (Version 1)
Quarter: 2019Q2

REPORT INFORMATION
  Report Type: Spontaneous
  Country: US (occurrence: US)
  Receive Date: 20190526
  Receipt Date: 20190526
  Transmission Date: 20190711
  Serious: Yes (Other)
  Sender: FDA-Public Use
  Company Number: US-TEVA-2019-US-1056557

PATIENT
  Sex: Female

DRUGS (2)
  1. POTASSIUM TABLET [Concomitant]
     Active Substance: POTASSIUM
     Route: 065
  2. HYDROCHLOROTHIAZIDE. [Suspect]
     Active Substance: HYDROCHLOROTHIAZIDE
     Route: 065

REACTIONS (1)
  - Heart valve incompetence [Not Recovered/Not Resolved]
